FAERS Safety Report 4528346-7 (Version None)
Quarter: 2004Q4

REPORT INFORMATION
  Report Type: 
  Country: None (occurrence: None)
  Receive Date: 20041130
  Receipt Date: 20040402
  Transmission Date: 20050328
  Serious: Yes (Other)
  Sender: FDA-Public Use
  Company Number: WAES 0404USA00208

PATIENT
  Age: 78 Year
  Sex: Female

DRUGS (2)
  1. FOSAMAX [Suspect]
     Indication: OSTEITIS DEFORMANS
     Dosage: 70 MG/WKY/PO; PO
     Route: 048
     Dates: start: 20031201, end: 20040109
  2. FOSAMAX [Suspect]
     Indication: OSTEOPOROSIS
     Dosage: 70 MG/WKY/PO; PO
     Route: 048
     Dates: start: 20031201, end: 20040109

REACTIONS (2)
  - ANGIONEUROTIC OEDEMA [None]
  - DYSPEPSIA [None]
